FAERS Safety Report 17954075 (Version 1)
Quarter: 2020Q2

REPORT INFORMATION
  Report Type: Spontaneous
  Country: US (occurrence: US)
  Receive Date: 20200629
  Receipt Date: 20200629
  Transmission Date: 20200714
  Serious: No
  Sender: FDA-Public Use
  Company Number: US-AMGEN INC.-USASP2020102573

PATIENT
  Sex: Female

DRUGS (1)
  1. AIMOVIG [Suspect]
     Active Substance: ERENUMAB-AOOE
     Indication: MIGRAINE
     Dosage: UNK
     Route: 065

REACTIONS (7)
  - Ataxia [Unknown]
  - Migraine [Unknown]
  - Vertigo [Unknown]
  - Urticaria [Unknown]
  - Sleep disorder due to a general medical condition [Unknown]
  - Ear pain [Unknown]
  - Epistaxis [Unknown]
